FAERS Safety Report 14096326 (Version 3)
Quarter: 2020Q4

REPORT INFORMATION
  Report Type: Spontaneous
  Country: US (occurrence: US)
  Receive Date: 20171017
  Receipt Date: 20201106
  Transmission Date: 20210113
  Serious: Yes (Hospitalization, Other)
  Sender: FDA-Public Use
  Company Number: US-ASTRAZENECA-2017SF04128

PATIENT
  Age: 64 Year
  Sex: Female
  Weight: 43.5 kg

DRUGS (11)
  1. SYMBICORT [Suspect]
     Active Substance: BUDESONIDE\FORMOTEROL FUMARATE DIHYDRATE
     Indication: DYSPNOEA
     Dosage: 160/4.5MCG 120-DOSE INHALER, TWO PUFFS TWICE DAILY
     Route: 055
     Dates: start: 2016
  2. SYMBICORT [Suspect]
     Active Substance: BUDESONIDE\FORMOTEROL FUMARATE DIHYDRATE
     Indication: LUNG NEOPLASM MALIGNANT
     Dosage: 160/4.5MCG 120-DOSE INHALER, TWO PUFFS TWICE DAILY
     Route: 055
     Dates: start: 2016
  3. PROAIR RESCUE INHALER [Concomitant]
     Indication: DYSPNOEA
     Dosage: AS REQUIRED
     Route: 055
     Dates: start: 2016
  4. SYMBICORT [Suspect]
     Active Substance: BUDESONIDE\FORMOTEROL FUMARATE DIHYDRATE
     Indication: LUNG NEOPLASM MALIGNANT
     Dosage: SOMETIMES USES SYMBICORT MEDICATION ON AN AS NEEDED BASIS(MISUSE) AS REQUIRED
     Route: 055
  5. LEVOTHYROXINE. [Concomitant]
     Active Substance: LEVOTHYROXINE
     Indication: THYROID DISORDER
     Dosage: DAILY- FOR ABOUT TWENTY YEARS
     Route: 048
  6. COL-EAZE [Concomitant]
     Indication: CONSTIPATION
     Dosage: DAILY
     Route: 048
     Dates: start: 2017
  7. SYMBICORT [Suspect]
     Active Substance: BUDESONIDE\FORMOTEROL FUMARATE DIHYDRATE
     Indication: CARDIAC DISORDER
     Dosage: SOMETIMES USES SYMBICORT MEDICATION ON AN AS NEEDED BASIS(MISUSE) AS REQUIRED
     Route: 055
  8. LINZESS [Concomitant]
     Active Substance: LINACLOTIDE
     Indication: CONSTIPATION
     Dosage: DAILY
     Route: 048
     Dates: start: 2017
  9. OMEPRAZOLE. [Suspect]
     Active Substance: OMEPRAZOLE
     Indication: GASTROOESOPHAGEAL REFLUX DISEASE
     Dosage: DAILY
     Route: 048
     Dates: start: 2013
  10. SYMBICORT [Suspect]
     Active Substance: BUDESONIDE\FORMOTEROL FUMARATE DIHYDRATE
     Indication: CARDIAC DISORDER
     Dosage: 160/4.5MCG 120-DOSE INHALER, TWO PUFFS TWICE DAILY
     Route: 055
     Dates: start: 2016
  11. SYMBICORT [Suspect]
     Active Substance: BUDESONIDE\FORMOTEROL FUMARATE DIHYDRATE
     Indication: DYSPNOEA
     Dosage: SOMETIMES USES SYMBICORT MEDICATION ON AN AS NEEDED BASIS(MISUSE) AS REQUIRED
     Route: 055

REACTIONS (14)
  - Product use in unapproved indication [Unknown]
  - Dyspnoea [Not Recovered/Not Resolved]
  - Product dose omission issue [Unknown]
  - Drug delivery system malfunction [Unknown]
  - Visual acuity reduced [Unknown]
  - Intentional product misuse [Unknown]
  - Intentional device misuse [Unknown]
  - Dyspnoea [Unknown]
  - Sinusitis [Unknown]
  - Pericardial effusion [Unknown]
  - Off label use [Unknown]
  - Lung neoplasm malignant [Unknown]
  - Pneumonia [Unknown]
  - Stress [Not Recovered/Not Resolved]

NARRATIVE: CASE EVENT DATE: 2016
